FAERS Safety Report 6568921-1 (Version None)
Quarter: 2010Q1

REPORT INFORMATION
  Report Type: 
  Country: None (occurrence: None)
  Receive Date: 20100203
  Receipt Date: 20100122
  Transmission Date: 20100710
  Serious: Yes (Other)
  Sender: FDA-Public Use
  Company Number: DE-PFIZER INC-2010008833

PATIENT
  Age: 69 Year
  Sex: Male
  Weight: 70 kg

DRUGS (5)
  1. SORTIS [Suspect]
     Indication: BLOOD CHOLESTEROL INCREASED
     Dosage: 1/2 OF A 40 MG TABLET/DAY
     Route: 048
  2. SORTIS [Suspect]
     Dosage: 1/2 OF 40MG EVERY OTHER DAY
  3. SIMVASTATIN [Suspect]
     Dosage: UNK
  4. RAMIPRIL [Concomitant]
     Indication: HYPERTENSION
     Dosage: UNK
  5. METOPROLOL [Concomitant]
     Indication: HYPERTENSION
     Dosage: UNK

REACTIONS (1)
  - GAMMA-GLUTAMYLTRANSFERASE INCREASED [None]
